FAERS Safety Report 23894326 (Version 1)
Quarter: 2024Q2

REPORT INFORMATION
  Report Type: Spontaneous
  Country: GB (occurrence: GB)
  Receive Date: 20240524
  Receipt Date: 20240524
  Transmission Date: 20240716
  Serious: Yes (Other)
  Sender: FDA-Public Use
  Company Number: None

PATIENT
  Age: 88 Year
  Sex: Female

DRUGS (10)
  1. AMLODIPINE [Suspect]
     Active Substance: AMLODIPINE BESYLATE
     Route: 065
  2. HUMULIN L [Concomitant]
     Active Substance: INSULIN HUMAN
     Dosage: IN THE MORNING,
     Dates: start: 20240405
  3. ENOXAPARIN SODIUM [Concomitant]
     Active Substance: ENOXAPARIN SODIUM
     Dosage: EVERY DAY,
     Dates: start: 20240410, end: 20240430
  4. ACETAMINOPHEN [Concomitant]
     Active Substance: ACETAMINOPHEN
     Dates: start: 20240405
  5. ADCAL [Concomitant]
     Dates: start: 20240405
  6. ATORVASTATIN [Concomitant]
     Active Substance: ATORVASTATIN
     Dates: start: 20240405
  7. DONEPEZIL HYDROCHLORIDE [Concomitant]
     Active Substance: DONEPEZIL HYDROCHLORIDE
     Dosage: AT NIGHT,
     Dates: start: 20240405
  8. CANDESARTAN [Concomitant]
     Active Substance: CANDESARTAN
     Dates: start: 20240405
  9. ENOXAPARIN SODIUM [Concomitant]
     Active Substance: ENOXAPARIN SODIUM
     Dates: start: 20240421, end: 20240501
  10. BUMETANIDE [Concomitant]
     Active Substance: BUMETANIDE
     Dosage: EACH MORNING,
     Dates: start: 20240405

REACTIONS (2)
  - Peripheral swelling [Recovered/Resolved]
  - Joint swelling [Unknown]
